FAERS Safety Report 22886410 (Version 5)
Quarter: 2023Q4

REPORT INFORMATION
  Report Type: Spontaneous
  Country: US (occurrence: US)
  Receive Date: 20230831
  Receipt Date: 20231219
  Transmission Date: 20240110
  Serious: Yes (Other)
  Sender: FDA-Public Use
  Company Number: US-APELLIS PHARMACEUTICALS-APL-2023-002893

PATIENT
  Age: 84 Year
  Sex: Female

DRUGS (1)
  1. SYFOVRE [Suspect]
     Active Substance: PEGCETACOPLAN
     Indication: Product used for unknown indication
     Dosage: OS

REACTIONS (4)
  - Retinal occlusive vasculitis [Recovering/Resolving]
  - Ocular hypertension [Unknown]
  - Vitritis [Recovering/Resolving]
  - Uveitis [Recovered/Resolved]

NARRATIVE: CASE EVENT DATE: 20230807
